FAERS Safety Report 7984009-7 (Version None)
Quarter: 2011Q4

REPORT INFORMATION
  Report Type: 
  Country: None (occurrence: None)
  Receive Date: 20111216
  Receipt Date: 20111212
  Transmission Date: 20120403
  Serious: Yes (Hospitalization, Other)
  Sender: FDA-Public Use
  Company Number: ES-PFIZER INC-2002067296

PATIENT
  Age: 34 Year
  Sex: Female

DRUGS (4)
  1. BECLOMETHASONE DIPROPIONATE [Concomitant]
     Indication: ASTHMA
     Dosage: 400 MG, UG EVERY 12 HOURS
     Route: 055
  2. SERTRALINE HYDROCHLORIDE [Suspect]
     Indication: DEPRESSION
     Dosage: 100 MG, 1X/DAY
     Route: 048
  3. SERTRALINE HYDROCHLORIDE [Suspect]
     Dosage: 200 MG, 1X/DAY
  4. TERBUTALINE [Concomitant]
     Indication: ASTHMA
     Dosage: UNK
     Route: 055

REACTIONS (2)
  - DEPRESSION [None]
  - EOSINOPHILIC PNEUMONIA ACUTE [None]
